FAERS Safety Report 20478087 (Version 4)
Quarter: 2022Q2

REPORT INFORMATION
  Report Type: Report from Study
  Country: CH (occurrence: CH)
  Receive Date: 20220216
  Receipt Date: 20220414
  Transmission Date: 20220721
  Serious: Yes (Hospitalization)
  Sender: FDA-Public Use
  Company Number: CH-ABBVIE-22K-151-4279221-00

PATIENT
  Age: 86 Year
  Sex: Female

DRUGS (10)
  1. CARBIDOPA\LEVODOPA [Suspect]
     Active Substance: CARBIDOPA\LEVODOPA
     Indication: Parkinson^s disease
     Dosage: MD: 2 ML, CRD: 2.5 ML/H, CRN: 0 ML/H, ED: 1.0 ML
     Route: 050
     Dates: start: 20211214, end: 20211216
  2. CARBIDOPA\LEVODOPA [Suspect]
     Active Substance: CARBIDOPA\LEVODOPA
     Dosage: MD: 1 ML, CRD: 1.5 ML/H, CRN: 0 ML/H, ED: 0.5 ML
     Route: 050
     Dates: start: 20211216, end: 20211216
  3. CARBIDOPA\LEVODOPA [Suspect]
     Active Substance: CARBIDOPA\LEVODOPA
     Dosage: MD: 1 ML, CRD: 1.4 ML/H, CRN: 0.9 ML/H, ED: 0.5 ML
     Route: 050
     Dates: start: 20211216, end: 20211217
  4. CARBIDOPA\LEVODOPA [Suspect]
     Active Substance: CARBIDOPA\LEVODOPA
     Dosage: MD: 3.5 ML, CRD: 1.2 ML/H, CRN: 0.9 ML/H, ED: 0.5 ML
     Route: 050
     Dates: start: 20211217, end: 20220201
  5. CARBIDOPA\LEVODOPA [Suspect]
     Active Substance: CARBIDOPA\LEVODOPA
     Dosage: MD: 3.5 ML, CRD: 1.2 ML/H, CRN: 0.9 ML/H, ED: 0.5 ML
     Route: 050
     Dates: start: 20220201, end: 20220203
  6. CARBIDOPA\LEVODOPA [Suspect]
     Active Substance: CARBIDOPA\LEVODOPA
     Dosage: MD: 3.5 ML, CRD: 1.3 ML/H, CRN: 0.9 ML/H, ED: 0.5 ML
     Route: 050
     Dates: start: 20220203, end: 20220213
  7. CARBIDOPA\LEVODOPA [Suspect]
     Active Substance: CARBIDOPA\LEVODOPA
     Dosage: MD: 3.5 ML, CRD: 1.6 ML/H, CRN: 0.9 ML/H, ED: 0.5 ML
     Route: 050
     Dates: start: 20220213, end: 20220227
  8. CARBIDOPA\LEVODOPA [Suspect]
     Active Substance: CARBIDOPA\LEVODOPA
     Dosage: MD: 3.5 ML, CRD: 1.6 ML/H, CRN: 0.9 ML/H, ED: 0.5 ML
     Route: 050
     Dates: start: 20220227, end: 202202
  9. CARBIDOPA\LEVODOPA [Suspect]
     Active Substance: CARBIDOPA\LEVODOPA
     Dosage: MD: 3.5 ML, CRD: 1.6 ML/H, CRN: 0.9 ML/H, ED: 0.5 ML
     Route: 050
     Dates: start: 20220228, end: 20220411
  10. CARBIDOPA\LEVODOPA [Suspect]
     Active Substance: CARBIDOPA\LEVODOPA
     Dosage: MD: 3.5 ML, CRD: 1.3 ML/H, CRN: 0.9 ML/H, ED: 0.5 ML
     Route: 050
     Dates: start: 20220411

REACTIONS (4)
  - Device expulsion [Recovered/Resolved]
  - Device expulsion [Recovered/Resolved]
  - Immobile [Unknown]
  - Off label use [Recovered/Resolved]

NARRATIVE: CASE EVENT DATE: 20220227
